FAERS Safety Report 10345749 (Version 3)
Quarter: 2014Q3

REPORT INFORMATION
  Report Type: Spontaneous
  Country: US (occurrence: US)
  Receive Date: 20140728
  Receipt Date: 20140912
  Transmission Date: 20150326
  Serious: Yes (Hospitalization, Other)
  Sender: FDA-Public Use
  Company Number: US-SA-2014SA096837

PATIENT
  Age: 58 Year
  Sex: Male

DRUGS (13)
  1. FUROSEMIDE. [Suspect]
     Active Substance: FUROSEMIDE
     Indication: HYPERTENSION
     Route: 065
  2. LIORESAL [Suspect]
     Active Substance: BACLOFEN
     Indication: PRODUCT USED FOR UNKNOWN INDICATION
     Route: 037
  3. ATARAX [Suspect]
     Active Substance: HYDROXYZINE\HYDROXYZINE HYDROCHLORIDE
     Indication: PRURITUS
     Route: 065
  4. BACLOFEN. [Suspect]
     Active Substance: BACLOFEN
     Indication: MUSCLE SPASTICITY
     Route: 037
     Dates: start: 20140618
  5. COPAXONE [Suspect]
     Active Substance: GLATIRAMER ACETATE
     Indication: MULTIPLE SCLEROSIS
     Route: 065
  6. DOXYCYCLINE. [Suspect]
     Active Substance: DOXYCYCLINE
     Indication: PRODUCT USED FOR UNKNOWN INDICATION
     Route: 065
  7. LEVAQUIN [Suspect]
     Active Substance: LEVOFLOXACIN
     Indication: PRODUCT USED FOR UNKNOWN INDICATION
     Route: 065
  8. LIORESAL [Suspect]
     Active Substance: BACLOFEN
     Indication: PRODUCT USED FOR UNKNOWN INDICATION
     Route: 037
     Dates: start: 20140324
  9. ANTIBIOTICS [Suspect]
     Active Substance: UNSPECIFIED INGREDIENT
     Indication: PRODUCT USED FOR UNKNOWN INDICATION
     Route: 042
  10. CEFPODOXIME PROXETIL. [Suspect]
     Active Substance: CEFPODOXIME PROXETIL
     Indication: PRODUCT USED FOR UNKNOWN INDICATION
     Route: 065
  11. BACLOFEN. [Suspect]
     Active Substance: BACLOFEN
     Indication: MUSCLE SPASTICITY
     Dosage: DOSE: 249.7
     Route: 037
     Dates: start: 20140307
  12. LIORESAL [Suspect]
     Active Substance: BACLOFEN
     Indication: PRODUCT USED FOR UNKNOWN INDICATION
     Route: 037
     Dates: end: 20140618
  13. ANTIBIOTICS [Suspect]
     Active Substance: UNSPECIFIED INGREDIENT
     Indication: PRODUCT USED FOR UNKNOWN INDICATION
     Route: 065

REACTIONS (24)
  - Drug withdrawal syndrome [Unknown]
  - General physical health deterioration [Unknown]
  - Stenotrophomonas test positive [Unknown]
  - Muscle atrophy [Unknown]
  - Muscle rigidity [Unknown]
  - Respiratory disorder [Unknown]
  - Pain in extremity [Unknown]
  - Urine odour abnormal [Unknown]
  - Pruritus [Unknown]
  - Dysstasia [Unknown]
  - Bronchospasm [Unknown]
  - Abnormal behaviour [Unknown]
  - Muscle spasms [Unknown]
  - Quality of life decreased [Unknown]
  - Muscle spasticity [Unknown]
  - Therapeutic response decreased [Unknown]
  - Therapeutic response increased [Unknown]
  - Insomnia [Unknown]
  - No therapeutic response [Unknown]
  - Escherichia test positive [Unknown]
  - Hypertension [Unknown]
  - Urinary tract infection [Unknown]
  - Condition aggravated [Unknown]
  - Performance status decreased [Unknown]

NARRATIVE: CASE EVENT DATE: 20140620
